FAERS Safety Report 9301211 (Version 1)
Quarter: 2013Q2

REPORT INFORMATION
  Report Type: Spontaneous
  Country: US (occurrence: None)
  Receive Date: 20130520
  Receipt Date: 20130520
  Transmission Date: 20140414
  Serious: Yes (Hospitalization)
  Sender: FDA-Public Use
  Company Number: None

PATIENT
  Age: 53 Year
  Sex: Female
  Weight: 63.6 kg

DRUGS (8)
  1. LEVOFLOXACIN [Suspect]
     Indication: URINARY TRACT INFECTION
     Route: 048
     Dates: start: 20130503, end: 20130509
  2. AZELAIC ACID -FINACEA- [Concomitant]
  3. BUPROPION -WELLBUTRIN SR- [Concomitant]
  4. CYCLOBENZAPRINE -FLEXERIL- [Concomitant]
  5. ESTRADIOL -ESTRACE- [Concomitant]
  6. NAPROXEN -ALEVE- [Concomitant]
  7. NITROFURANTOIN MACROCRYSTALS/MONOHYDRATE -MACROBID- [Concomitant]
  8. ONDANSETRON -ZOFRAN- [Concomitant]

REACTIONS (12)
  - Myalgia [None]
  - Erythema [None]
  - Rash pruritic [None]
  - Tachycardia [None]
  - Sepsis [None]
  - Urticaria [None]
  - Tendonitis [None]
  - Influenza like illness [None]
  - Systemic inflammatory response syndrome [None]
  - Leukocytosis [None]
  - Hypotension [None]
  - Tendon pain [None]
